FAERS Safety Report 17529982 (Version 1)
Quarter: 2020Q1

REPORT INFORMATION
  Report Type: Report from Study
  Country: None (occurrence: US)
  Receive Date: 20200311
  Receipt Date: 20200311
  Transmission Date: 20200409
  Serious: Yes (Other)
  Sender: FDA-Public Use
  Company Number: US-ABBVIE-20K-163-3271931-00

PATIENT
  Age: 70 Year
  Sex: Female
  Weight: 86.26 kg

DRUGS (4)
  1. LISINOPRIL. [Concomitant]
     Active Substance: LISINOPRIL
     Indication: HYPERTENSION
  2. AMLODIPINE [Concomitant]
     Active Substance: AMLODIPINE BESYLATE
     Indication: PRODUCT USED FOR UNKNOWN INDICATION
  3. HUMIRA [Suspect]
     Active Substance: ADALIMUMAB
     Indication: PSORIASIS
     Route: 058
  4. HUMIRA [Suspect]
     Active Substance: ADALIMUMAB
     Indication: PSORIATIC ARTHROPATHY
     Route: 058
     Dates: start: 2019

REACTIONS (7)
  - Rash macular [Recovering/Resolving]
  - Skin cancer [Recovered/Resolved]
  - Pain in extremity [Recovering/Resolving]
  - Meniscus injury [Recovered/Resolved]
  - Ankle fracture [Recovered/Resolved]
  - Joint noise [Unknown]
  - Skin cancer [Recovering/Resolving]

NARRATIVE: CASE EVENT DATE: 2003
